FAERS Safety Report 13349991 (Version 1)
Quarter: 2017Q1

REPORT INFORMATION
  Report Type: Spontaneous
  Country: GB (occurrence: GB)
  Receive Date: 20170320
  Receipt Date: 20170320
  Transmission Date: 20170429
  Serious: Yes (Hospitalization, Other)
  Sender: FDA-Public Use
  Company Number: GB-TEVA-749161ACC

PATIENT
  Age: 82 Year

DRUGS (1)
  1. CO-AMOXICLAV [Suspect]
     Active Substance: AMOXICILLIN\CLAVULANIC ACID

REACTIONS (4)
  - Cardiac arrest [Unknown]
  - Pulseless electrical activity [Unknown]
  - Anaphylactic reaction [Unknown]
  - Wheezing [Unknown]

NARRATIVE: CASE EVENT DATE: 20161031
